FAERS Safety Report 8977425 (Version 2)
Quarter: 2013Q1

REPORT INFORMATION
  Report Type: Spontaneous
  Country: US (occurrence: US)
  Receive Date: 20121220
  Receipt Date: 20130111
  Transmission Date: 20140127
  Serious: Yes (Death)
  Sender: FDA-Public Use
  Company Number: US-BAXTER-2012BAX027911

PATIENT
  Sex: Female

DRUGS (1)
  1. DIANEAL LOW CALCIUM [Suspect]
     Indication: PERITONEAL DIALYSIS
     Route: 033
     Dates: end: 20121214

REACTIONS (6)
  - Cardiac failure [Fatal]
  - Dyspnoea [Fatal]
  - Cardiac disorder [Fatal]
  - Peritonitis bacterial [Recovering/Resolving]
  - Haemorrhage [Unknown]
  - Peritoneal dialysis complication [Recovered/Resolved]
